FAERS Safety Report 19918559 (Version 2)
Quarter: 2021Q4

REPORT INFORMATION
  Report Type: Report from Study
  Country: CA (occurrence: CA)
  Receive Date: 20211005
  Receipt Date: 20211020
  Transmission Date: 20220303
  Serious: Yes (Death, Other)
  Sender: FDA-Public Use
  Company Number: NVSC2021CA222510

PATIENT
  Sex: Male

DRUGS (1)
  1. DABRAFENIB [Suspect]
     Active Substance: DABRAFENIB
     Indication: Astrocytoma
     Dosage: UNK
     Route: 048

REACTIONS (3)
  - Hydrocephalus [Fatal]
  - Astrocytoma [Unknown]
  - Malignant neoplasm progression [Unknown]
